FAERS Safety Report 5929174-8 (Version None)
Quarter: 2008Q4

REPORT INFORMATION
  Report Type: 
  Country: None (occurrence: None)
  Receive Date: 20081023
  Receipt Date: 20081023
  Transmission Date: 20090506
  Serious: Yes (Life-Threatening, Other)
  Sender: FDA-Public Use
  Company Number: None

PATIENT
  Age: 37 Year
  Sex: Female
  Weight: 68.0396 kg

DRUGS (2)
  1. RISPERDAL [Suspect]
     Indication: DEPRESSION
     Dosage: 2MG ONCE DAILY PO
     Route: 048
     Dates: start: 20070212, end: 20070312
  2. RISPERDAL [Suspect]
     Indication: INSOMNIA
     Dosage: 2MG ONCE DAILY PO
     Route: 048
     Dates: start: 20070212, end: 20070312

REACTIONS (6)
  - FEAR [None]
  - FEELING ABNORMAL [None]
  - HALLUCINATION [None]
  - SLEEP DISORDER [None]
  - SLEEP TERROR [None]
  - SUICIDE ATTEMPT [None]
